FAERS Safety Report 6731252-0 (Version None)
Quarter: 2010Q2

REPORT INFORMATION
  Report Type: 
  Country: None (occurrence: None)
  Receive Date: 20100518
  Receipt Date: 20100510
  Transmission Date: 20101027
  Serious: Yes (Other)
  Sender: FDA-Public Use
  Company Number: US-GENENTECH-301769

PATIENT

DRUGS (5)
  1. RITUXIMAB [Suspect]
     Indication: B-CELL LYMPHOMA
     Dosage: 375 MG/M2, Q2W
     Route: 042
  2. METHOTREXATE [Suspect]
     Indication: B-CELL LYMPHOMA
     Dosage: UNK
     Route: 042
  3. FOLINIC ACID [Concomitant]
     Indication: DRUG USE FOR UNKNOWN INDICATION
     Dosage: 10 MG/M2, Q6H
     Route: 048
  4. DEXAMETHASONE [Concomitant]
     Indication: DRUG USE FOR UNKNOWN INDICATION
     Dosage: UNK
     Route: 048
  5. ONDANSETRON [Concomitant]
     Indication: PREMEDICATION
     Dosage: UNK

REACTIONS (8)
  - ANAEMIA [None]
  - FATIGUE [None]
  - HEPATOTOXICITY [None]
  - HYPERGLYCAEMIA [None]
  - NEPHROPATHY TOXIC [None]
  - NEUTROPENIA [None]
  - RENAL FAILURE ACUTE [None]
  - THROMBOPHLEBITIS [None]
